FAERS Safety Report 6964050-3 (Version None)
Quarter: 2010Q3

REPORT INFORMATION
  Report Type: 
  Country: None (occurrence: None)
  Receive Date: 20100902
  Receipt Date: 20100902
  Transmission Date: 20110219
  Serious: Yes (Hospitalization)
  Sender: FDA-Public Use
  Company Number: None

PATIENT
  Sex: Male
  Weight: 71 kg

DRUGS (4)
  1. DOXORUBICIN HCL [Suspect]
     Dosage: 111 MG
  2. ETOPOSIDE [Suspect]
     Dosage: 840 MG
  3. IFOSFAMIDE [Suspect]
     Dosage: 16.83 G
  4. VINCRISTINE SULFATE [Suspect]
     Dosage: 2 MG

REACTIONS (3)
  - OXYGEN SATURATION DECREASED [None]
  - RESPIRATORY DISORDER [None]
  - TACHYPNOEA [None]
